FAERS Safety Report 25934284 (Version 1)
Quarter: 2025Q4

REPORT INFORMATION
  Report Type: Report from Study
  Country: IN (occurrence: None)
  Receive Date: 20251017
  Receipt Date: 20251017
  Transmission Date: 20260118
  Serious: Yes (Other)
  Sender: ENCUBE ETHICALS PVT. LTD.
  Company Number: IN-Encube-002521

PATIENT

DRUGS (2)
  1. TRETINOIN [Suspect]
     Active Substance: TRETINOIN
     Indication: Acute promyelocytic leukaemia
     Dosage: RECEIVED 45 MG/M2 IN 2 DIVIDED DOSES
  2. ARSENIC TRIOXIDE [Suspect]
     Active Substance: ARSENIC TRIOXIDE
     Indication: Acute promyelocytic leukaemia

REACTIONS (3)
  - Mesenteric artery thrombosis [Unknown]
  - Off label use [Unknown]
  - Colon gangrene [Unknown]
